FAERS Safety Report 8249716-X (Version None)
Quarter: 2012Q1

REPORT INFORMATION
  Report Type: 
  Country: None (occurrence: None)
  Receive Date: 20120316
  Receipt Date: 20110315
  Transmission Date: 20120608
  Serious: Yes (Disabling)
  Sender: FDA-Public Use
  Company Number: PHHY2011US13603

PATIENT
  Age: 67 Year
  Sex: Female
  Weight: 102 kg

DRUGS (12)
  1. LASIX [Concomitant]
  2. ALBUTEROL [Concomitant]
  3. REQUIP [Concomitant]
  4. DIOVAN HCT [Concomitant]
  5. ZEBETA [Concomitant]
  6. SIMVASTATIN [Concomitant]
  7. TEKTURNA [Suspect]
     Indication: HYPERTENSION
     Dosage: 150 MG, ORAL, 300 MG, QD, ORAL
     Route: 048
     Dates: start: 20100222
  8. TEKTURNA [Suspect]
     Indication: HYPERTENSION
     Dosage: 150 MG, ORAL, 300 MG, QD, ORAL
     Route: 048
     Dates: start: 20101202, end: 20110209
  9. AMLODIPINE [Concomitant]
  10. POTASSIUM CHLORIDE [Concomitant]
  11. OMEPRAZOLE [Concomitant]
  12. PROZAC [Concomitant]

REACTIONS (5)
  - BLOOD PRESSURE INADEQUATELY CONTROLLED [None]
  - GOUT [None]
  - PAIN IN EXTREMITY [None]
  - JOINT SWELLING [None]
  - ERYTHEMA [None]
